FAERS Safety Report 24193406 (Version 1)
Quarter: 2024Q3

REPORT INFORMATION
  Report Type: Spontaneous
  Country: IT (occurrence: IT)
  Receive Date: 20240809
  Receipt Date: 20240809
  Transmission Date: 20241017
  Serious: Yes (Hospitalization)
  Sender: JOHNSON AND JOHNSON
  Company Number: IT-JNJFOC-20240815705

PATIENT
  Age: 85 Year
  Sex: Female

DRUGS (15)
  1. IMODIUM [Suspect]
     Active Substance: LOPERAMIDE HYDROCHLORIDE
     Indication: Product used for unknown indication
     Dosage: THE DOSAGE AND POSOLOGY TAKEN BY THE PATIENT ARE NOT KNOWN. IT IS ASSUMED THAT THE PATIENT TOOK THE
     Route: 065
  2. SPASMEX [PHLOROGLUCINOL] [Concomitant]
     Indication: Product used for unknown indication
     Dosage: THE DOSAGE AND POSOLOGY TAKEN BY THE PATIENT ARE NOT KNOWN. IT IS ASSUMED THAT THE MEDICATION WAS TA
     Route: 065
  3. TACHIPIRINA [Concomitant]
     Active Substance: ACETAMINOPHEN
     Indication: Product used for unknown indication
     Dosage: THE DOSAGE AND POSOLOGY TAKEN BY THE PATIENT ARE NOT KNOWN. IT IS ASSUMED THAT THE MEDICATION WAS TA
     Route: 065
  4. RIFAXIMIN [Concomitant]
     Active Substance: RIFAXIMIN
     Indication: Product used for unknown indication
     Dosage: THE DOSAGE AND POSOLOGY TAKEN BY THE PATIENT ARE NOT KNOWN. IT IS ASSUMED THAT THE MEDICATION WAS TA
     Route: 065
  5. LASIX [Concomitant]
     Active Substance: FUROSEMIDE
     Indication: Product used for unknown indication
     Route: 065
  6. DROPAXIN [Concomitant]
     Indication: Product used for unknown indication
     Route: 065
  7. SIMVASTATIN [Concomitant]
     Active Substance: SIMVASTATIN
     Indication: Product used for unknown indication
     Route: 065
  8. PANTOPAN [Concomitant]
     Active Substance: PANTOPRAZOLE SODIUM
     Indication: Product used for unknown indication
     Route: 065
  9. ASPIRIN DL-LYSINE [Concomitant]
     Active Substance: ASPIRIN DL-LYSINE
     Indication: Product used for unknown indication
     Route: 065
  10. CARDURA [Concomitant]
     Active Substance: DOXAZOSIN MESYLATE
     Indication: Product used for unknown indication
     Route: 065
  11. CHOLECALCIFEROL [Concomitant]
     Active Substance: CHOLECALCIFEROL
     Indication: Product used for unknown indication
     Route: 065
  12. FERROUS SULFATE [Concomitant]
     Active Substance: FERROUS SULFATE
     Indication: Product used for unknown indication
     Route: 065
  13. FOLIC ACID [Concomitant]
     Active Substance: FOLIC ACID
     Indication: Product used for unknown indication
     Route: 065
  14. CALCITRIOL [Concomitant]
     Active Substance: CALCITRIOL
     Indication: Product used for unknown indication
     Route: 065
  15. FEBUXOSTAT [Concomitant]
     Active Substance: FEBUXOSTAT
     Indication: Product used for unknown indication
     Route: 065

REACTIONS (3)
  - Enteritis [Recovered/Resolved]
  - Constipation [Recovered/Resolved]
  - Vomiting [Recovered/Resolved]

NARRATIVE: CASE EVENT DATE: 20240619
